FAERS Safety Report 7606336-5 (Version None)
Quarter: 2011Q3

REPORT INFORMATION
  Report Type: 
  Country: None (occurrence: None)
  Receive Date: 20110713
  Receipt Date: 20110704
  Transmission Date: 20111222
  Serious: Yes (Other)
  Sender: FDA-Public Use
  Company Number: DE-ASTRAZENECA-2011SE36194

PATIENT
  Age: 75 Year
  Sex: Male
  Weight: 80 kg

DRUGS (12)
  1. CRATAEGUS [Concomitant]
  2. PANTOPRAZOLE [Concomitant]
  3. GALVUS [Concomitant]
  4. TORSEMIDE [Concomitant]
     Route: 048
  5. VERPAMIL HCL [Concomitant]
     Route: 048
     Dates: start: 20110501
  6. EBRANTIL [Concomitant]
     Dosage: DAILY
     Route: 048
     Dates: end: 20110401
  7. ATACAND [Suspect]
     Indication: ESSENTIAL HYPERTENSION
     Route: 048
     Dates: start: 20090101, end: 20110401
  8. BUDES [Concomitant]
  9. METFORMIN HCL [Concomitant]
  10. ASPIRIN [Concomitant]
  11. RASILEZ [Concomitant]
  12. VERPAMIL HCL [Concomitant]
     Route: 048
     Dates: end: 20110401

REACTIONS (5)
  - ANAEMIA [None]
  - DECREASED APPETITE [None]
  - ASTHENIA [None]
  - DRUG INEFFECTIVE [None]
  - WEIGHT DECREASED [None]
